FAERS Safety Report 4704281-6 (Version None)
Quarter: 2005Q2

REPORT INFORMATION
  Report Type: 
  Country: None (occurrence: None)
  Receive Date: 20050630
  Receipt Date: 20050622
  Transmission Date: 20051028
  Serious: Yes (Hospitalization)
  Sender: FDA-Public Use
  Company Number: US-JNJFOC-20050606409

PATIENT
  Sex: Female
  Weight: 101.15 kg

DRUGS (3)
  1. MICRONOR [Suspect]
     Route: 049
  2. MICRONOR [Suspect]
     Indication: CONTRACEPTION
     Route: 049
  3. LOVENOX [Concomitant]
     Indication: DRUG USE FOR UNKNOWN INDICATION

REACTIONS (1)
  - PULMONARY EMBOLISM [None]
